FAERS Safety Report 4804560-8 (Version None)
Quarter: 2005Q4

REPORT INFORMATION
  Report Type: 
  Country: None (occurrence: None)
  Receive Date: 20051020
  Receipt Date: 20050701
  Transmission Date: 20060501
  Serious: Yes (Hospitalization)
  Sender: FDA-Public Use
  Company Number: US-MERCK-0507USA00461

PATIENT
  Age: 56 Year
  Sex: Male
  Weight: 80 kg

DRUGS (12)
  1. COUMADIN [Concomitant]
     Indication: SCLERODERMA
     Route: 065
     Dates: start: 19900101, end: 20010101
  2. VIOXX [Suspect]
     Indication: OSTEOARTHRITIS
     Route: 048
     Dates: start: 19990101, end: 20020101
  3. VIOXX [Suspect]
     Indication: RHEUMATOID ARTHRITIS
     Route: 048
     Dates: start: 19990101, end: 20020101
  4. ASPIRIN [Concomitant]
     Indication: RHEUMATOID ARTHRITIS
     Route: 065
     Dates: start: 19880101
  5. ASPIRIN [Concomitant]
     Indication: OSTEOARTHRITIS
     Route: 065
     Dates: start: 19880101
  6. COUMADIN [Concomitant]
     Indication: AMPUTATION
     Route: 065
     Dates: start: 19900101, end: 20010101
  7. METOPROLOL [Concomitant]
     Route: 065
     Dates: start: 19990101
  8. LASIX [Concomitant]
     Indication: OEDEMA PERIPHERAL
     Route: 065
     Dates: start: 19990101, end: 20010101
  9. LOPID [Concomitant]
     Route: 065
     Dates: start: 19990101, end: 20010101
  10. TYLENOL (CAPLET) [Concomitant]
     Indication: ARTHRITIS
     Route: 065
     Dates: start: 19880101
  11. [THERAPY UNSPECIFIED] [Concomitant]
     Indication: HYPERTENSION
     Route: 065
  12. [THERAPY UNSPECIFIED] [Concomitant]
     Indication: SCLERODERMA
     Route: 065

REACTIONS (3)
  - ARTERIAL OCCLUSIVE DISEASE [None]
  - CARDIAC FAILURE CONGESTIVE [None]
  - MYOCARDIAL INFARCTION [None]
